FAERS Safety Report 22132845 (Version 1)
Quarter: 2023Q1

REPORT INFORMATION
  Report Type: Spontaneous
  Country: US (occurrence: None)
  Receive Date: 20230323
  Receipt Date: 20230323
  Transmission Date: 20230417
  Serious: No
  Sender: FDA-Public Use
  Company Number: US-ROCHE-3292249

PATIENT
  Age: 57 Year
  Sex: Male

DRUGS (1)
  1. LUNSUMIO [Suspect]
     Active Substance: MOSUNETUZUMAB-AXGB
     Indication: Follicular lymphoma
     Dosage: INFUSION WAS STARTED AT 18:12 AND COMPLETED AT 23:20
     Route: 065
     Dates: start: 20230215

REACTIONS (3)
  - Malaise [Recovered/Resolved]
  - Chills [Recovered/Resolved]
  - Body temperature increased [Recovered/Resolved]

NARRATIVE: CASE EVENT DATE: 20230215
